FAERS Safety Report 20438031 (Version 1)
Quarter: 2022Q1

REPORT INFORMATION
  Report Type: Spontaneous
  Country: FR (occurrence: FR)
  Receive Date: 20220207
  Receipt Date: 20220207
  Transmission Date: 20220423
  Serious: Yes (Other)
  Sender: FDA-Public Use
  Company Number: None

PATIENT
  Age: 78 Year
  Sex: Female
  Weight: 72 kg

DRUGS (5)
  1. ETOPOSIDE [Suspect]
     Active Substance: ETOPOSIDE
     Indication: Follicular lymphoma
     Route: 042
     Dates: start: 20191007, end: 20191121
  2. DOXORUBICIN [Suspect]
     Active Substance: DOXORUBICIN
     Indication: Follicular lymphoma
     Route: 042
     Dates: start: 20190806, end: 20191121
  3. RITUXIMAB [Suspect]
     Active Substance: RITUXIMAB
     Indication: Follicular lymphoma
     Dosage: RITUXIMAB ((MAMMAL/HAMSTER/CHO CELLS))
     Route: 042
     Dates: start: 20190806, end: 20210920
  4. CYCLOPHOSPHAMIDE [Suspect]
     Active Substance: CYCLOPHOSPHAMIDE
     Indication: Follicular lymphoma
     Route: 042
     Dates: start: 20190806, end: 20191121
  5. ONCOVIN [Suspect]
     Active Substance: VINCRISTINE SULFATE
     Indication: Follicular lymphoma
     Route: 042
     Dates: start: 20190806, end: 20210920

REACTIONS (1)
  - Neuroendocrine carcinoma of the skin [Not Recovered/Not Resolved]

NARRATIVE: CASE EVENT DATE: 20211201
